FAERS Safety Report 4828212-3 (Version None)
Quarter: 2005Q4

REPORT INFORMATION
  Report Type: 
  Country: None (occurrence: None)
  Receive Date: 20051115
  Receipt Date: 20051101
  Transmission Date: 20060501
  Serious: Yes (Other)
  Sender: FDA-Public Use
  Company Number: PHEH2005US12156

PATIENT
  Age: 90 Year
  Sex: Female

DRUGS (4)
  1. ENABLEX [Suspect]
     Indication: MICTURITION URGENCY
     Dosage: 7.5 MG, QD
     Dates: start: 20050923, end: 20050926
  2. DIOVAN HCT [Concomitant]
  3. CELEBREX [Concomitant]
     Dosage: 200 MG, QD
  4. ALEVE [Concomitant]
     Dosage: 200 MG, QD

REACTIONS (1)
  - HALLUCINATION [None]
